FAERS Safety Report 7911080-0 (Version None)
Quarter: 2011Q4

REPORT INFORMATION
  Report Type: 
  Country: None (occurrence: None)
  Receive Date: 20111114
  Receipt Date: 20111103
  Transmission Date: 20120403
  Serious: Yes (Death, Hospitalization)
  Sender: FDA-Public Use
  Company Number: DK-BRISTOL-MYERS SQUIBB COMPANY-16226987

PATIENT

DRUGS (5)
  1. ONDANSETRON [Concomitant]
     Indication: PREMEDICATION
     Dosage: 1 DF : 8MGX2,BEFORE IRINOTECAN INFUSION
     Route: 048
  2. IRINOTECAN HCL [Concomitant]
     Indication: GASTROOESOPHAGEAL CANCER
     Dosage: AFTER 1 HOUR OF ERBITUX INFUSION
  3. PREDNISONE TAB [Concomitant]
     Indication: PREMEDICATION
     Route: 048
  4. ATROPINE [Concomitant]
  5. ERBITUX [Suspect]
     Indication: GASTROOESOPHAGEAL CANCER
     Dosage: ONCE,120MIN,NO OF COURSES: 1

REACTIONS (1)
  - VOLVULUS [None]
